FAERS Safety Report 13182680 (Version 2)
Quarter: 2017Q1

REPORT INFORMATION
  Report Type: Spontaneous
  Country: US (occurrence: US)
  Receive Date: 20170203
  Receipt Date: 20170307
  Transmission Date: 20170428
  Serious: No
  Sender: FDA-Public Use
  Company Number: US-PFIZER INC-2017044995

PATIENT
  Age: 49 Year
  Sex: Female
  Weight: 66 kg

DRUGS (10)
  1. HYDROCHLOROTHIAZIDE. [Concomitant]
     Active Substance: HYDROCHLOROTHIAZIDE
     Indication: SWELLING
  2. MOBIC [Concomitant]
     Active Substance: MELOXICAM
     Dosage: 15 MG, DAILY (FOOD)
     Route: 048
     Dates: start: 20160429
  3. LOVASTATIN. [Concomitant]
     Active Substance: LOVASTATIN
     Dosage: 20 MG, DAILY (THE EVENING MEAL)
     Route: 048
     Dates: start: 20160429
  4. METOPROLOL TARTRATE. [Concomitant]
     Active Substance: METOPROLOL TARTRATE
     Dosage: 100 MG, TWICE A DAY (MEALS)
     Route: 048
     Dates: start: 20160429
  5. TRAMADOL. [Concomitant]
     Active Substance: TRAMADOL
     Dosage: 50 MG, AS NEEDED (3 TIMES EVERY DAY)
     Route: 048
     Dates: start: 20160429
  6. POTASSIUM CHLORIDE. [Concomitant]
     Active Substance: POTASSIUM CHLORIDE
     Dosage: 20 MEQ/L, DAILY (FOOD)
     Route: 048
     Dates: start: 20160429
  7. LYRICA [Suspect]
     Active Substance: PREGABALIN
     Indication: ARTHRALGIA
     Dosage: 150 MG, TWICE A DAY
     Route: 048
     Dates: start: 20150805
  8. HYDROCHLOROTHIAZIDE. [Concomitant]
     Active Substance: HYDROCHLOROTHIAZIDE
     Indication: HYPERTENSION
     Dosage: 25 MG, DAILY
     Route: 048
     Dates: start: 20160429
  9. BACLOFEN. [Concomitant]
     Active Substance: BACLOFEN
     Dosage: 10 MG, TWICE A DAY
     Route: 048
     Dates: start: 20160429
  10. LISINOPRIL. [Concomitant]
     Active Substance: LISINOPRIL
     Dosage: 20 MG, TWICE A DAY
     Route: 048
     Dates: start: 20160429

REACTIONS (4)
  - Nausea [Unknown]
  - Anxiety [Unknown]
  - Fatigue [Unknown]
  - Product use issue [Unknown]
